FAERS Safety Report 24845827 (Version 1)
Quarter: 2025Q1

REPORT INFORMATION
  Report Type: Spontaneous
  Country: US (occurrence: None)
  Receive Date: 20250115
  Receipt Date: 20250115
  Transmission Date: 20250408
  Serious: Yes (Hospitalization)
  Sender: FDA-CTU
  Company Number: None

PATIENT
  Age: 71 Year
  Sex: Female

DRUGS (22)
  1. CARFILZOMIB [Suspect]
     Active Substance: CARFILZOMIB
     Indication: Plasma cell myeloma
     Dates: start: 202412, end: 202412
  2. REVLIMID [Suspect]
     Active Substance: LENALIDOMIDE
     Indication: Plasma cell myeloma
     Route: 048
     Dates: start: 20230818, end: 20241206
  3. ISATUXIMAB [Suspect]
     Active Substance: ISATUXIMAB
  4. ASPIRIN [Concomitant]
     Active Substance: ASPIRIN
  5. ELIQUIS [Concomitant]
     Active Substance: APIXABAN
  6. METOPROLOL [Concomitant]
     Active Substance: METOPROLOL
  7. DEXAMETHASONE [Concomitant]
     Active Substance: DEXAMETHASONE
  8. POMALYST [Concomitant]
     Active Substance: POMALIDOMIDE
  9. LOSARTAN [Concomitant]
     Active Substance: LOSARTAN
  10. FUROSEMIDE [Concomitant]
     Active Substance: FUROSEMIDE
  11. CLOTRIMAZOLE-BETAMETHASONE CRM [Concomitant]
  12. ACETAMINOPHEN\OXYCODONE HYDROCHLORIDE [Concomitant]
     Active Substance: ACETAMINOPHEN\OXYCODONE HYDROCHLORIDE
  13. ACYCLOVIR [Concomitant]
     Active Substance: ACYCLOVIR
  14. MONTELUKAST [Concomitant]
     Active Substance: MONTELUKAST
  15. GABAPENTIN [Concomitant]
     Active Substance: GABAPENTIN
  16. ATORVASTATIN [Concomitant]
     Active Substance: ATORVASTATIN
  17. ALBUTEROL HFA INH [Concomitant]
  18. BRED ELLIPTA [Concomitant]
  19. IMODIUM [Concomitant]
     Active Substance: LOPERAMIDE HYDROCHLORIDE
  20. PRILOSEC [Concomitant]
     Active Substance: OMEPRAZOLE MAGNESIUM
  21. CALCIUM [Concomitant]
     Active Substance: CALCIUM
  22. VITAMIN D [Concomitant]
     Active Substance: VITAMIN D NOS

REACTIONS (5)
  - Atrial fibrillation [None]
  - Cardiac failure [None]
  - Pulmonary oedema [None]
  - Pericardial effusion [None]
  - Malignant neoplasm progression [None]

NARRATIVE: CASE EVENT DATE: 20241201
